FAERS Safety Report 16664034 (Version 1)
Quarter: 2019Q3

REPORT INFORMATION
  Report Type: Report from Study
  Country: IT (occurrence: IT)
  Receive Date: 20190802
  Receipt Date: 20190802
  Transmission Date: 20191004
  Serious: Yes (Other)
  Sender: FDA-Public Use
  Company Number: IT-TEVA-2019-IT-1086876

PATIENT
  Age: 69 Year
  Sex: Male

DRUGS (8)
  1. APIXABAN [Concomitant]
     Active Substance: APIXABAN
  2. FOLIC ACID. [Concomitant]
     Active Substance: FOLIC ACID
  3. FLECAINIDE [Suspect]
     Active Substance: FLECAINIDE
     Indication: ARRHYTHMIA
     Route: 048
  4. METFORMIN [Concomitant]
     Active Substance: METFORMIN HYDROCHLORIDE
  5. DELTACORTENE 5 MG COMPRESSE [Concomitant]
     Active Substance: PREDNISONE
  6. BISOPROLOL FUMARATE. [Suspect]
     Active Substance: BISOPROLOL FUMARATE
     Indication: HYPERTENSION
     Route: 048
  7. METHOTREXATE. [Concomitant]
     Active Substance: METHOTREXATE
  8. BARICITINIB [Concomitant]
     Active Substance: BARICITINIB

REACTIONS (2)
  - Bradyarrhythmia [Recovering/Resolving]
  - Asthenia [Recovering/Resolving]

NARRATIVE: CASE EVENT DATE: 20190426
